FAERS Safety Report 8578001-1 (Version None)
Quarter: 2012Q3

REPORT INFORMATION
  Report Type: 
  Country: None (occurrence: None)
  Receive Date: 20120808
  Receipt Date: 20120801
  Transmission Date: 20120928
  Serious: Yes (Life-Threatening, Hospitalization)
  Sender: FDA-Public Use
  Company Number: DE-BRISTOL-MYERS SQUIBB COMPANY-16778847

PATIENT
  Sex: Male

DRUGS (4)
  1. IPILIMUMAB [Suspect]
     Indication: METASTATIC MALIGNANT MELANOMA
     Dosage: 10MG/KG
     Route: 042
     Dates: start: 20120424, end: 20120605
  2. TAMSULOSIN HCL [Concomitant]
     Dates: start: 20101001
  3. RAMIPRIL [Concomitant]
     Dates: start: 20110731
  4. ASPIRIN [Concomitant]
     Dates: start: 20080301

REACTIONS (1)
  - UROSEPSIS [None]
